FAERS Safety Report 14667691 (Version 1)
Quarter: 2018Q1

REPORT INFORMATION
  Report Type: Spontaneous
  Country: US (occurrence: US)
  Receive Date: 20180322
  Receipt Date: 20180322
  Transmission Date: 20180509
  Serious: No
  Sender: FDA-Public Use
  Company Number: US-PFIZER INC-2018115922

PATIENT
  Sex: Male

DRUGS (1)
  1. GABAPENTIN. [Suspect]
     Active Substance: GABAPENTIN
     Indication: NEUROPATHY PERIPHERAL
     Dosage: 2400 MG, DAILY (8 PILLS DAILY, 3 IN THE MORNING AND THEN 2 LATER ON AND THEN 3 IN THE EVENING)

REACTIONS (3)
  - Asthenia [Unknown]
  - Drug ineffective for unapproved indication [Unknown]
  - Limb discomfort [Unknown]
